FAERS Safety Report 17591681 (Version 5)
Quarter: 2020Q2

REPORT INFORMATION
  Report Type: Spontaneous
  Country: FR (occurrence: FR)
  Receive Date: 20200327
  Receipt Date: 20200502
  Transmission Date: 20200713
  Serious: Yes (Life-Threatening, Hospitalization, Other)
  Sender: FDA-Public Use
  Company Number: FR-AUROBINDO-AUR-APL-2020-015443

PATIENT
  Age: 52 Year
  Sex: Male

DRUGS (9)
  1. AMOXICILLIN+CLAVULANIC ACID [Suspect]
     Active Substance: AMOXICILLIN\CLAVULANIC ACID
     Indication: EAR PAIN
  2. INFLIXIMAB [Suspect]
     Active Substance: INFLIXIMAB
     Indication: PRODUCT USED FOR UNKNOWN INDICATION
     Dosage: UNK
     Route: 065
  3. AMOXICILLIN+CLAVULANIC ACID [Suspect]
     Active Substance: AMOXICILLIN\CLAVULANIC ACID
     Indication: ODYNOPHAGIA
  4. METHOTREXATE. [Suspect]
     Active Substance: METHOTREXATE
     Indication: ANKYLOSING SPONDYLITIS
     Dosage: 20 MILLIGRAM, EVERY WEEK SINCE 5 DAYS
     Route: 065
  5. METHOTREXATE. [Suspect]
     Active Substance: METHOTREXATE
     Indication: RHEUMATIC DISORDER
     Dosage: UNK
     Route: 065
  6. CELECOXIB. [Suspect]
     Active Substance: CELECOXIB
     Indication: RHEUMATIC DISORDER
     Dosage: UNK
     Route: 065
  7. PREDNISOLONE. [Suspect]
     Active Substance: PREDNISOLONE
     Indication: PRODUCT USED FOR UNKNOWN INDICATION
     Dosage: UNK
     Route: 065
  8. CELECOXIB. [Suspect]
     Active Substance: CELECOXIB
     Dosage: FOR MORE THAN A YEAR
     Route: 065
  9. AMOXICILLIN+CLAVULANIC ACID [Suspect]
     Active Substance: AMOXICILLIN\CLAVULANIC ACID
     Indication: RHEUMATIC DISORDER
     Dosage: UNK
     Route: 065

REACTIONS (22)
  - Cardiopulmonary failure [Recovered/Resolved]
  - Bundle branch block left [Recovered/Resolved]
  - Ventricular dysfunction [Recovered/Resolved]
  - Drug reaction with eosinophilia and systemic symptoms [Recovered/Resolved]
  - C-reactive protein increased [Unknown]
  - Leukocytosis [Recovered/Resolved]
  - Epstein-Barr virus infection reactivation [Recovered/Resolved]
  - Thrombocytopenia [Recovered/Resolved]
  - Ejection fraction decreased [Recovered/Resolved]
  - Acute generalised exanthematous pustulosis [Recovered/Resolved]
  - Interstitial lung disease [Recovered/Resolved]
  - Pyrexia [Recovered/Resolved]
  - Rash maculo-papular [Recovered/Resolved]
  - Product use in unapproved indication [Unknown]
  - Drug eruption [Unknown]
  - Lymphadenopathy [Recovered/Resolved]
  - Rash pustular [Recovered/Resolved]
  - Cardiac disorder [Recovered/Resolved]
  - Hepatocellular injury [Recovered/Resolved]
  - Anaemia [Recovered/Resolved]
  - Cardiac dysfunction [Recovered/Resolved]
  - Eosinophilia [Recovered/Resolved]
